FAERS Safety Report 13287768 (Version 1)
Quarter: 2017Q1

REPORT INFORMATION
  Report Type: Report from Study
  Country: US (occurrence: US)
  Receive Date: 20170302
  Receipt Date: 20170302
  Transmission Date: 20170428
  Serious: Yes (Death, Hospitalization)
  Sender: FDA-Public Use
  Company Number: US-B.I. PHARMACEUTICALS,INC./RIDGEFIELD-2017-BI-002244

PATIENT
  Sex: Female

DRUGS (1)
  1. GILOTRIF [Suspect]
     Active Substance: AFATINIB
     Indication: NON-SMALL CELL LUNG CANCER
     Route: 048
     Dates: start: 201701

REACTIONS (8)
  - Cough [Unknown]
  - Pneumonia [Fatal]
  - Pneumonitis [Fatal]
  - Memory impairment [Unknown]
  - Dyspnoea [Unknown]
  - Insomnia [Unknown]
  - Anxiety [Unknown]
  - Feeling abnormal [Unknown]
